FAERS Safety Report 17896653 (Version 5)
Quarter: 2020Q4

REPORT INFORMATION
  Report Type: Spontaneous
  Country: US (occurrence: US)
  Receive Date: 20200615
  Receipt Date: 20201204
  Transmission Date: 20210113
  Serious: Yes (Other)
  Sender: FDA-Public Use
  Company Number: US-NEUROCRINE BIOSCIENCES INC.-2020NBI01874

PATIENT
  Age: 79 Year
  Sex: Female

DRUGS (2)
  1. INGREZZA [Suspect]
     Active Substance: VALBENAZINE
     Indication: TARDIVE DYSKINESIA
     Route: 048
     Dates: start: 20200511, end: 20200703
  2. INGREZZA [Suspect]
     Active Substance: VALBENAZINE
     Indication: AKATHISIA
     Route: 048
     Dates: start: 20200703, end: 20201109

REACTIONS (9)
  - Fall [Recovered/Resolved]
  - Therapeutic product effect incomplete [Unknown]
  - Nervousness [Unknown]
  - Feeling jittery [Unknown]
  - Wrist fracture [Unknown]
  - Hypoacusis [Unknown]
  - Somnolence [Unknown]
  - Therapeutic product effect decreased [Unknown]
  - Akathisia [Unknown]

NARRATIVE: CASE EVENT DATE: 2020
